FAERS Safety Report 7600535-4 (Version None)
Quarter: 2011Q3

REPORT INFORMATION
  Report Type: 
  Country: None (occurrence: None)
  Receive Date: 20110711
  Receipt Date: 20110704
  Transmission Date: 20111222
  Serious: Yes (Death)
  Sender: FDA-Public Use
  Company Number: JP-ROCHE-776806

PATIENT
  Sex: Female
  Weight: 45 kg

DRUGS (12)
  1. TOCILIZUMAB [Suspect]
     Indication: RHEUMATOID ARTHRITIS
     Route: 041
     Dates: start: 20090707, end: 20090707
  2. TOCILIZUMAB [Suspect]
     Route: 041
     Dates: start: 20091124, end: 20091124
  3. TOCILIZUMAB [Suspect]
     Route: 041
     Dates: start: 20090804, end: 20090804
  4. TOCILIZUMAB [Suspect]
     Route: 041
     Dates: start: 20091027, end: 20091027
  5. PREDNISOLONE [Concomitant]
     Route: 048
     Dates: end: 20110330
  6. LANSOPRAZOLE [Concomitant]
     Route: 048
     Dates: end: 20110330
  7. SOLETON [Concomitant]
     Route: 054
     Dates: end: 20110330
  8. LOXONIN [Concomitant]
     Dosage: FORM: TAPE
     Route: 061
     Dates: end: 20110330
  9. TOCILIZUMAB [Suspect]
     Route: 041
     Dates: start: 20090929, end: 20090929
  10. ISONIAZID [Concomitant]
     Route: 048
     Dates: start: 20090704, end: 20110330
  11. TOCILIZUMAB [Suspect]
     Route: 041
     Dates: start: 20090901, end: 20090901
  12. TOCILIZUMAB [Suspect]
     Dosage: NOTE: 352-380MG
     Route: 041
     Dates: start: 20091219, end: 20110223

REACTIONS (1)
  - INTERSTITIAL LUNG DISEASE [None]
